FAERS Safety Report 11802100 (Version 1)
Quarter: 2015Q4

REPORT INFORMATION
  Report Type: Spontaneous
  Country: US (occurrence: US)
  Receive Date: 20151204
  Receipt Date: 20151204
  Transmission Date: 20160305
  Serious: No
  Sender: FDA-Public Use
  Company Number: US-REGENERON PHARMACEUTICALS, INC.-2015-13047

PATIENT

DRUGS (1)
  1. EYLEA [Suspect]
     Active Substance: AFLIBERCEPT
     Indication: MACULAR DEGENERATION
     Dosage: OD, EVERY 5-6 WEEKS
     Route: 031
     Dates: start: 201411

REACTIONS (3)
  - Laryngitis [Unknown]
  - Drug administration error [Unknown]
  - Eye pain [Unknown]
